FAERS Safety Report 22604576 (Version 1)
Quarter: 2023Q2

REPORT INFORMATION
  Report Type: Spontaneous
  Country: FR (occurrence: FR)
  Receive Date: 20230615
  Receipt Date: 20230615
  Transmission Date: 20230722
  Serious: Yes (Congenital Anomaly)
  Sender: FDA-Public Use
  Company Number: None

PATIENT
  Sex: Female

DRUGS (3)
  1. CLONAZEPAM [Suspect]
     Active Substance: CLONAZEPAM
     Route: 064
     Dates: start: 20220707, end: 20230505
  2. PAROXETINE [Suspect]
     Active Substance: PAROXETINE
     Route: 064
     Dates: start: 20220707, end: 20230505
  3. OLANZAPINE [Suspect]
     Active Substance: OLANZAPINE
     Route: 064
     Dates: start: 20221107, end: 20230505

REACTIONS (3)
  - Clinodactyly [Not Recovered/Not Resolved]
  - Syndactyly [Not Recovered/Not Resolved]
  - Foetal exposure during pregnancy [Recovered/Resolved]

NARRATIVE: CASE EVENT DATE: 20220101
